FAERS Safety Report 7324532-1 (Version None)
Quarter: 2011Q1

REPORT INFORMATION
  Report Type: 
  Country: None (occurrence: None)
  Receive Date: 20110301
  Receipt Date: 20110218
  Transmission Date: 20110831
  Serious: Yes (Other)
  Sender: FDA-Public Use
  Company Number: US-PFIZER INC-2011015632

PATIENT
  Sex: Female
  Weight: 56.236 kg

DRUGS (17)
  1. CALCIUM [Concomitant]
     Indication: OSTEOPENIA
     Dosage: 1000 MG, DAILY
  2. VITAMIN E [Concomitant]
     Indication: OSTEOPENIA
     Dosage: 400 IU, DAILY
  3. COPPER GLUCONATE [Concomitant]
     Indication: OSTEOPENIA
     Dosage: 1 MG, 1X/DAY
  4. SPIRULINA [Concomitant]
     Indication: OSTEOPENIA
     Dosage: 1/2 TEASPOON, DAILY
  5. MANGANESE CITRATE [Concomitant]
     Indication: OSTEOPENIA
     Dosage: 1 MG, 1X/DAY
  6. AROMASIN [Suspect]
     Indication: BREAST CANCER
     Dosage: 25 MG, 1X/DAY
     Route: 048
     Dates: start: 20101117
  7. ASCORBIC ACID [Concomitant]
     Indication: OSTEOPENIA
     Dosage: 1000 MG, DAILY
  8. ZINC [Concomitant]
     Indication: OSTEOPENIA
     Dosage: 10 MG, 1X/DAY
  9. VITAMIN D [Concomitant]
     Indication: OSTEOPENIA
     Dosage: 2000 IU, DAILY
  10. FLAXSEED OIL [Concomitant]
     Indication: OSTEOPENIA
     Dosage: 3 DF, 1X/DAY
  11. VITAMIN A [Concomitant]
     Indication: OSTEOPENIA
     Dosage: 25000 IU, DAILY
  12. PSYLLIUM [Concomitant]
     Indication: OSTEOPENIA
     Dosage: 1 DF, 1X/DAY
  13. POTASSIUM CITRATE [Concomitant]
     Indication: OSTEOPENIA
     Dosage: 99 MG, 1X/DAY
  14. RED YEAST RICE [Concomitant]
     Indication: OSTEOPENIA
     Dosage: 600 MG, DAILY
  15. VITAMIN K TAB [Concomitant]
     Indication: OSTEOPENIA
     Dosage: 100 UG, 1X/DAY
  16. MAGNESIUM OXIDE [Concomitant]
     Indication: OSTEOPENIA
     Dosage: 500 MG, 1X/DAY
  17. OCUVITE LUTEIN [Concomitant]
     Indication: OSTEOPENIA
     Dosage: 1 DF, 1X/DAY

REACTIONS (3)
  - ARRHYTHMIA [None]
  - CONDITION AGGRAVATED [None]
  - PALPITATIONS [None]
